FAERS Safety Report 5676997-9 (Version None)
Quarter: 2008Q1

REPORT INFORMATION
  Report Type: 
  Country: None (occurrence: None)
  Receive Date: 20080324
  Receipt Date: 20080319
  Transmission Date: 20080703
  Serious: Yes (Hospitalization)
  Sender: FDA-Public Use
  Company Number: FR-WYE-G01276208

PATIENT
  Sex: Female

DRUGS (7)
  1. EFFEXOR [Suspect]
     Dosage: OVERDOSE AMOUNT WAS 4 500 MG OF EFFEXOR LP
     Route: 048
     Dates: start: 20070504, end: 20070504
  2. SALMETEROL [Concomitant]
     Dosage: UNKNOWN
  3. ESTRADIOL [Concomitant]
     Dosage: UNKNOWN
  4. OXAZEPAM [Concomitant]
     Dosage: UNKNOWN
  5. TERBUTALINE SULFATE [Concomitant]
     Dosage: UNKNOWN
  6. DONORMYL [Suspect]
     Dosage: OVERDOSE AMOUNT WAS 10 TABLETS OF DONORMYL
     Route: 048
     Dates: start: 20070504, end: 20070504
  7. FLUTICASONE [Concomitant]
     Dosage: UNKNOWN

REACTIONS (4)
  - MULTIPLE DRUG OVERDOSE INTENTIONAL [None]
  - PNEUMONIA ASPIRATION [None]
  - SEDATION [None]
  - SUICIDE ATTEMPT [None]
